FAERS Safety Report 23530531 (Version 2)
Quarter: 2024Q1

REPORT INFORMATION
  Report Type: Spontaneous
  Country: US (occurrence: None)
  Receive Date: 20240216
  Receipt Date: 20240220
  Transmission Date: 20240409
  Serious: Yes (Other)
  Sender: FDA-Public Use
  Company Number: US-ROCHE-3505816

PATIENT
  Age: 53 Year
  Sex: Female
  Weight: 52.21 kg

DRUGS (18)
  1. OCREVUS [Suspect]
     Active Substance: OCRELIZUMAB
     Indication: Relapsing-remitting multiple sclerosis
     Dosage: 600 MG IN 500 ML 0.9% SODIUM CHLORIDE EVERY 6 MONTHS
     Route: 042
     Dates: start: 20190624
  2. COMBIGAN [Concomitant]
     Active Substance: BRIMONIDINE TARTRATE\TIMOLOL MALEATE
  3. LATANOPROST [Concomitant]
     Active Substance: LATANOPROST
  4. RESTASIS [Concomitant]
     Active Substance: CYCLOSPORINE
  5. KETOROLAC [Concomitant]
     Active Substance: KETOROLAC TROMETHAMINE
  6. RHOPRESSA [Concomitant]
     Active Substance: NETARSUDIL MESYLATE
  7. VITAMIN B12 [Concomitant]
     Active Substance: CYANOCOBALAMIN
  8. VITAMIN D2 [Concomitant]
     Active Substance: ERGOCALCIFEROL
  9. HYDROXYCHLOROQUINE [Concomitant]
     Active Substance: HYDROXYCHLOROQUINE
  10. BACLOFEN [Concomitant]
     Active Substance: BACLOFEN
  11. TIZANIDINE [Concomitant]
     Active Substance: TIZANIDINE
  12. GABAPENTIN [Concomitant]
     Active Substance: GABAPENTIN
  13. AMPYRA [Concomitant]
     Active Substance: DALFAMPRIDINE
  14. MYRBETRIQ [Concomitant]
     Active Substance: MIRABEGRON
  15. FLUOCINONIDE [Concomitant]
     Active Substance: FLUOCINONIDE
  16. LORATADINE [Concomitant]
     Active Substance: LORATADINE
  17. ALENDRONATE [Concomitant]
     Active Substance: ALENDRONATE SODIUM
  18. METOPROLOL [Concomitant]
     Active Substance: METOPROLOL

REACTIONS (3)
  - Trichorrhexis [Not Recovered/Not Resolved]
  - Urinary tract infection [Not Recovered/Not Resolved]
  - Gait disturbance [Unknown]

NARRATIVE: CASE EVENT DATE: 20230701
